FAERS Safety Report 18016012 (Version 1)
Quarter: 2020Q3

REPORT INFORMATION
  Report Type: Spontaneous
  Country: CN (occurrence: CN)
  Receive Date: 20200713
  Receipt Date: 20200713
  Transmission Date: 20201103
  Serious: Yes (Hospitalization, Other)
  Sender: FDA-Public Use
  Company Number: CN-PFIZER INC-2020266618

PATIENT
  Age: 61 Year
  Sex: Female
  Weight: 52 kg

DRUGS (3)
  1. MENATETRENONE [Suspect]
     Active Substance: MENATETRENONE
     Indication: OSTEOPOROSIS
     Dosage: 1 DF, 3X/DAY
     Route: 048
     Dates: start: 20200629, end: 20200630
  2. CALCIUM CARBONATE/VITAMIN D3 [Suspect]
     Active Substance: CALCIUM CARBONATE\CHOLECALCIFEROL
     Indication: OSTEOPOROSIS
     Dosage: 1 DF, 2X/DAY
     Route: 048
     Dates: start: 20200629, end: 20200630
  3. CELEBREX [Suspect]
     Active Substance: CELECOXIB
     Indication: OSTEOPOROSIS
     Dosage: 1 DF, 2X/DAY
     Route: 048
     Dates: start: 20200629, end: 20200630

REACTIONS (3)
  - Macule [Recovering/Resolving]
  - Papule [Recovering/Resolving]
  - Drug eruption [Recovering/Resolving]

NARRATIVE: CASE EVENT DATE: 20200630
